FAERS Safety Report 22000588 (Version 1)
Quarter: 2023Q1

REPORT INFORMATION
  Report Type: Other
  Country: IL (occurrence: None)
  Receive Date: 20230216
  Receipt Date: 20230216
  Transmission Date: 20230418
  Serious: Yes (Other)
  Sender: FDA-Public Use
  Company Number: IL-USAntibiotics-000124

PATIENT
  Age: 06 Year
  Sex: Male

DRUGS (3)
  1. AMOXICILLIN [Suspect]
     Active Substance: AMOXICILLIN
     Indication: Product used for unknown indication
  2. CALCIUM [Concomitant]
     Active Substance: CALCIUM
     Indication: Hypoparathyroidism
  3. VITAMIN D [Concomitant]
     Active Substance: VITAMIN D NOS
     Indication: Hypoparathyroidism

REACTIONS (5)
  - Pneumonia [Unknown]
  - Bacteraemia [Unknown]
  - Drug ineffective [Unknown]
  - Influenza [Unknown]
  - Respiratory syncytial virus infection [Unknown]
